FAERS Safety Report 8601204-4 (Version None)
Quarter: 2012Q3

REPORT INFORMATION
  Report Type: 
  Country: None (occurrence: None)
  Receive Date: 20120806
  Receipt Date: 20120806
  Transmission Date: 20120928
  Serious: Yes (Other)
  Sender: FDA-Public Use
  Company Number: None

PATIENT
  Age: 58 Year
  Sex: Female
  Weight: 81.6475 kg

DRUGS (9)
  1. BACLOFEN [Suspect]
     Indication: MUSCLE TIGHTNESS
     Dosage: 10MG PO TID
     Route: 048
     Dates: start: 20120703, end: 20120714
  2. LISINOPRIL [Concomitant]
  3. SIMVASTATIN [Concomitant]
  4. FLUTICASONE PROPIONATE [Concomitant]
  5. CLONAZEPAM [Concomitant]
  6. COMBIVENT [Concomitant]
  7. ASPIRIN [Concomitant]
  8. ALBUTEROL [Concomitant]
  9. SERTRALINE HYDROCHLORIDE [Concomitant]

REACTIONS (13)
  - VISION BLURRED [None]
  - CRYING [None]
  - INCONTINENCE [None]
  - MUSCULAR WEAKNESS [None]
  - NIGHTMARE [None]
  - MENTAL IMPAIRMENT [None]
  - ACTIVITIES OF DAILY LIVING IMPAIRED [None]
  - WEIGHT DECREASED [None]
  - MOOD ALTERED [None]
  - HEADACHE [None]
  - FEAR OF FALLING [None]
  - COUGH [None]
  - OROPHARYNGEAL PAIN [None]
